FAERS Safety Report 6313531-4 (Version None)
Quarter: 2009Q3

REPORT INFORMATION
  Report Type: 
  Country: None (occurrence: None)
  Receive Date: 20090818
  Receipt Date: 20090710
  Transmission Date: 20100115
  Serious: No
  Sender: FDA-Public Use
  Company Number: US-BAYER-200929041NA

PATIENT
  Age: 81 Year
  Sex: Female
  Weight: 57 kg

DRUGS (1)
  1. ULTRAVIST PHARMACY BULK PACKAGE 370 [Suspect]
     Indication: COMPUTERISED TOMOGRAM THORAX
     Dosage: AS USED: 80 ML  UNIT DOSE: 500 ML
     Route: 042
     Dates: start: 20090708, end: 20090708

REACTIONS (2)
  - PRURITUS [None]
  - URTICARIA [None]
